FAERS Safety Report 5565972-0 (Version None)
Quarter: 2007Q4

REPORT INFORMATION
  Report Type: 
  Country: None (occurrence: None)
  Receive Date: 20071219
  Receipt Date: 20071213
  Transmission Date: 20080405
  Serious: Yes (Other)
  Sender: FDA-Public Use
  Company Number: ES-BAYER-200718139GPV

PATIENT
  Age: 76 Year
  Sex: Male

DRUGS (1)
  1. ULTRAVIST 300 MG I/ML (IOPROMIDE) [Suspect]
     Indication: SCAN
     Dates: start: 20070904, end: 20070904

REACTIONS (2)
  - DYSPNOEA [None]
  - PRURITUS GENERALISED [None]
